FAERS Safety Report 5441465-6 (Version None)
Quarter: 2007Q3

REPORT INFORMATION
  Report Type: 
  Country: None (occurrence: None)
  Receive Date: 20070904
  Receipt Date: 20070827
  Transmission Date: 20080115
  Serious: Yes (Hospitalization)
  Sender: FDA-Public Use
  Company Number: JP-ELI_LILLY_AND_COMPANY-JP200701001705

PATIENT
  Age: 32 Year
  Sex: Female

DRUGS (3)
  1. ZYPREXA [Suspect]
     Indication: SCHIZOPHRENIA
     Dosage: 1.25 MG, DAILY (1/D)
     Route: 048
     Dates: start: 20061111, end: 20061209
  2. ZYPREXA [Suspect]
     Dosage: 5 MG, DAILY (1/D)
     Route: 048
     Dates: start: 20051111, end: 20061110
  3. AKINETON [Concomitant]
     Indication: AKINESIA
     Dosage: 1 MG, DAILY (1/D)
     Route: 048
     Dates: start: 20051111, end: 20061110

REACTIONS (3)
  - DRUG EXPOSURE DURING PREGNANCY [None]
  - PREMATURE LABOUR [None]
  - THREATENED LABOUR [None]
